FAERS Safety Report 18098983 (Version 2)
Quarter: 2020Q4

REPORT INFORMATION
  Report Type: Spontaneous
  Country: US (occurrence: US)
  Receive Date: 20200731
  Receipt Date: 20201012
  Transmission Date: 20210113
  Serious: No
  Sender: FDA-Public Use
  Company Number: US-ASTRAZENECA-2020SE85696

PATIENT
  Age: 846 Month
  Sex: Female
  Weight: 69.4 kg

DRUGS (4)
  1. FARXIGA [Suspect]
     Active Substance: DAPAGLIFLOZIN PROPANEDIOL
     Indication: OVERWEIGHT
     Route: 048
     Dates: start: 202006
  2. FARXIGA [Suspect]
     Active Substance: DAPAGLIFLOZIN PROPANEDIOL
     Indication: HYPERGLYCAEMIA
     Route: 048
     Dates: start: 202006
  3. FARXIGA [Suspect]
     Active Substance: DAPAGLIFLOZIN PROPANEDIOL
     Indication: HYPERGLYCAEMIA
     Route: 048
  4. FARXIGA [Suspect]
     Active Substance: DAPAGLIFLOZIN PROPANEDIOL
     Indication: OVERWEIGHT
     Route: 048

REACTIONS (4)
  - Decreased appetite [Not Recovered/Not Resolved]
  - Hypoglycaemia [Recovered/Resolved]
  - Insomnia [Recovered/Resolved]
  - Hyperglycaemia [Recovered/Resolved]

NARRATIVE: CASE EVENT DATE: 202006
